FAERS Safety Report 11123663 (Version 2)
Quarter: 2015Q2

REPORT INFORMATION
  Report Type: Report from Study
  Country: BR (occurrence: BR)
  Receive Date: 20150519
  Receipt Date: 20150528
  Transmission Date: 20150821
  Serious: Yes (Other)
  Sender: FDA-Public Use
  Company Number: PHHY2015BR050716

PATIENT
  Age: 50 Year
  Sex: Male

DRUGS (1)
  1. SANDOSTATIN LAR DEPOT [Suspect]
     Active Substance: OCTREOTIDE ACETATE
     Indication: PITUITARY TUMOUR
     Dosage: 20 MG (1 AMPOULE), EACH 28 DAYS
     Route: 065

REACTIONS (11)
  - Neoplasm progression [Not Recovered/Not Resolved]
  - Nausea [Recovering/Resolving]
  - Insulin-like growth factor increased [Recovering/Resolving]
  - Body height increased [Unknown]
  - Asthenia [Not Recovered/Not Resolved]
  - Arthralgia [Not Recovered/Not Resolved]
  - Abdominal distension [Not Recovered/Not Resolved]
  - Nervousness [Unknown]
  - Malaise [Unknown]
  - Headache [Not Recovered/Not Resolved]
  - Apnoea [Unknown]

NARRATIVE: CASE EVENT DATE: 20150417
